FAERS Safety Report 7762365-2 (Version None)
Quarter: 2011Q3

REPORT INFORMATION
  Report Type: 
  Country: None (occurrence: None)
  Receive Date: 20110920
  Receipt Date: 20110916
  Transmission Date: 20111222
  Serious: Yes (Other)
  Sender: FDA-Public Use
  Company Number: PL-ROCHE-800162

PATIENT
  Age: 30 Year
  Sex: Female

DRUGS (2)
  1. MIRCERA [Suspect]
     Route: 065
     Dates: start: 20110829
  2. MIRCERA [Suspect]
     Route: 065
     Dates: start: 20100101

REACTIONS (3)
  - HYPERTENSIVE ENCEPHALOPATHY [None]
  - HYPERTENSIVE CRISIS [None]
  - DEHYDRATION [None]
